FAERS Safety Report 9168266 (Version 1)
Quarter: 2013Q1

REPORT INFORMATION
  Report Type: Report from Study
  Country: DE (occurrence: DE)
  Receive Date: 20130318
  Receipt Date: 20130318
  Transmission Date: 20140127
  Serious: Yes (Death, Life-Threatening, Hospitalization, Other)
  Sender: FDA-Public Use
  Company Number: DE-CELGENEUS-062-C4047-12100655

PATIENT
  Age: 74 Year
  Sex: Female
  Weight: 83 kg

DRUGS (15)
  1. CC-4047 [Suspect]
     Indication: PLASMA CELL MYELOMA
     Route: 048
     Dates: start: 20120523
  2. CC-4047 [Suspect]
     Route: 048
     Dates: start: 20120914
  3. CC-4047 [Suspect]
     Route: 048
     Dates: start: 20121016, end: 20121102
  4. DEXAMETHASONE [Suspect]
     Indication: PLASMA CELL MYELOMA
     Route: 065
     Dates: start: 20120523
  5. DEXAMETHASONE [Suspect]
     Route: 065
     Dates: start: 20120914
  6. DEXAMETHASONE [Suspect]
     Route: 065
     Dates: start: 20121016, end: 20121102
  7. FALITHROM [Concomitant]
     Indication: PROPHYLAXIS
     Dosage: 1.5 MILLIGRAM
     Route: 048
     Dates: start: 20120519, end: 20121004
  8. FALITHROM [Concomitant]
     Indication: INTRACARDIAC THROMBUS
     Dosage: 3 MILLIGRAM
     Route: 048
     Dates: start: 20121005, end: 20121101
  9. FALITHROM [Concomitant]
     Indication: THROMBOSIS PROPHYLAXIS
     Route: 048
     Dates: start: 20120629, end: 20121004
  10. ACICLOVIR [Concomitant]
     Indication: PROPHYLAXIS
     Dosage: 400 MILLIGRAM
     Route: 048
     Dates: start: 200809, end: 20121101
  11. TIMOLOLHYDROGENMALE [Concomitant]
     Indication: GLAUCOMA
     Dosage: 2 DROPS
     Route: 047
     Dates: start: 2006, end: 20121101
  12. COLDASTOP [Concomitant]
     Indication: PROPHYLAXIS
     Route: 045
     Dates: start: 20120529, end: 20121101
  13. DEXPANTHENOL [Concomitant]
     Indication: PROPHYLAXIS
     Route: 045
     Dates: start: 20120629, end: 20121101
  14. TRIAMCINOLONE [Concomitant]
     Indication: RASH
     Route: 061
     Dates: start: 20120702, end: 20121101
  15. FEXOFENADINE [Concomitant]
     Indication: RHINITIS
     Route: 048
     Dates: start: 20120702, end: 20121101

REACTIONS (2)
  - Pneumonia pneumococcal [Fatal]
  - Atrial flutter [Recovered/Resolved with Sequelae]
